FAERS Safety Report 9563190 (Version 2)
Quarter: 2013Q3

REPORT INFORMATION
  Report Type: Spontaneous
  Country: US (occurrence: US)
  Receive Date: 20130927
  Receipt Date: 20130927
  Transmission Date: 20140515
  Serious: No
  Sender: FDA-Public Use
  Company Number: US-BRISTOL-MYERS SQUIBB COMPANY-18889568

PATIENT
  Age: 79 Year
  Sex: Female

DRUGS (1)
  1. ONGLYZA TABS [Suspect]
     Indication: TYPE 2 DIABETES MELLITUS

REACTIONS (2)
  - Gingival pain [Recovered/Resolved]
  - Gingival swelling [Recovered/Resolved]
